FAERS Safety Report 4297396-0 (Version None)
Quarter: 2004Q1

REPORT INFORMATION
  Report Type: 
  Country: None (occurrence: None)
  Receive Date: 20040213
  Receipt Date: 20040204
  Transmission Date: 20041129
  Serious: Yes (Hospitalization, Other)
  Sender: FDA-Public Use
  Company Number: USA-2004-0012854

PATIENT
  Age: 89 Year
  Sex: Male

DRUGS (1)
  1. OXYCONTIN [Suspect]
     Indication: PAIN
     Dosage: 60 MG, SEE TEXT

REACTIONS (2)
  - JAUNDICE [None]
  - PAIN EXACERBATED [None]
